FAERS Safety Report 13781138 (Version 1)
Quarter: 2017Q3

REPORT INFORMATION
  Report Type: Spontaneous
  Country: US (occurrence: US)
  Receive Date: 20170723
  Receipt Date: 20170723
  Transmission Date: 20171127
  Serious: No
  Sender: FDA-Public Use
  Company Number: None

PATIENT
  Age: 41 Year
  Sex: Male
  Weight: 95.85 kg

DRUGS (1)
  1. ITRACONOZOLE 2/100MG [Suspect]
     Active Substance: ITRACONAZOLE
     Indication: PRODUCT USED FOR UNKNOWN INDICATION
     Dosage: ?          OTHER STRENGTH:MG;QUANTITY:2 CAPSULE(S);?
     Route: 048
     Dates: start: 20170711, end: 20170722

REACTIONS (1)
  - Alopecia [None]

NARRATIVE: CASE EVENT DATE: 20170721
